FAERS Safety Report 16185905 (Version 2)
Quarter: 2020Q1

REPORT INFORMATION
  Report Type: Spontaneous
  Country: US (occurrence: US)
  Receive Date: 20190411
  Receipt Date: 20200115
  Transmission Date: 20200409
  Serious: Yes (Other)
  Sender: FDA-Public Use
  Company Number: US-VERTEX PHARMACEUTICALS-2019-003157

PATIENT
  Sex: Male

DRUGS (5)
  1. AMICAR [Concomitant]
     Active Substance: AMINOCAPROIC ACID
  2. CAYSTON [Concomitant]
     Active Substance: AZTREONAM
  3. SYMDEKO [Suspect]
     Active Substance: IVACAFTOR\TEZACAFTOR
     Indication: CYSTIC FIBROSIS
     Dosage: TAKE 1 YELLOW TABLET (TEZACAFTOR 100MG/IVACAFTOR 150MG) IN THE MORNING AND 1 BLUE
     Route: 048
     Dates: start: 201805
  4. TRANEXAMIC ACID. [Concomitant]
     Active Substance: TRANEXAMIC ACID
  5. TOBRAMYCIN. [Concomitant]
     Active Substance: TOBRAMYCIN

REACTIONS (5)
  - Near death experience [Unknown]
  - Post-traumatic stress disorder [Unknown]
  - Abscess [Unknown]
  - Brain operation [Unknown]
  - Seizure [Unknown]

NARRATIVE: CASE EVENT DATE: 2019
